FAERS Safety Report 16665275 (Version 1)
Quarter: 2019Q3

REPORT INFORMATION
  Report Type: Spontaneous
  Country: US (occurrence: US)
  Receive Date: 20190803
  Receipt Date: 20190803
  Transmission Date: 20191004
  Serious: Yes (Other)
  Sender: FDA-Public Use
  Company Number: US-ACCORD-125864

PATIENT
  Age: 35 Year
  Sex: Female

DRUGS (15)
  1. MIRTAZAPINE. [Concomitant]
     Active Substance: MIRTAZAPINE
     Dates: start: 2013
  2. AMITRIPTYLINE [Concomitant]
     Active Substance: AMITRIPTYLINE
     Dates: start: 2013, end: 2015
  3. NORCO [Concomitant]
     Active Substance: ACETAMINOPHEN\HYDROCODONE BITARTRATE
     Dates: start: 201308
  4. SEROQUEL [Concomitant]
     Active Substance: QUETIAPINE FUMARATE
     Dates: start: 2012
  5. NEULASTA [Concomitant]
     Active Substance: PEGFILGRASTIM
     Dates: start: 2013, end: 2014
  6. ZOFRAN [Concomitant]
     Active Substance: ONDANSETRON HYDROCHLORIDE
     Dates: start: 2013, end: 2014
  7. DECADRON [Concomitant]
     Active Substance: DEXAMETHASONE
     Dates: start: 2013, end: 2014
  8. ADRIAMYCIN [Suspect]
     Active Substance: DOXORUBICIN HYDROCHLORIDE
     Indication: BREAST CANCER
     Dates: start: 20130709, end: 20131022
  9. XANAX [Concomitant]
     Active Substance: ALPRAZOLAM
     Dates: start: 2012
  10. DOCETAXEL ACCORD [Suspect]
     Active Substance: DOCETAXEL
     Indication: BREAST CANCER
     Dates: start: 20130709, end: 20131022
  11. NEOSAR [Suspect]
     Active Substance: CYCLOPHOSPHAMIDE
     Indication: BREAST CANCER
     Dates: start: 20130609, end: 20131022
  12. OLANZAPINE. [Concomitant]
     Active Substance: OLANZAPINE
     Dates: start: 2013, end: 2015
  13. DEXAMETHASONE. [Concomitant]
     Active Substance: DEXAMETHASONE
     Dates: start: 2013, end: 2014
  14. DULOXETINE. [Concomitant]
     Active Substance: DULOXETINE
     Dates: start: 2013
  15. MEGASTRAL [Concomitant]
     Dates: start: 2012

REACTIONS (1)
  - Alopecia [Not Recovered/Not Resolved]

NARRATIVE: CASE EVENT DATE: 201308
